FAERS Safety Report 7935988-5 (Version None)
Quarter: 2011Q4

REPORT INFORMATION
  Report Type: 
  Country: None (occurrence: None)
  Receive Date: 20111123
  Receipt Date: 20111115
  Transmission Date: 20120403
  Serious: Yes (Hospitalization, Other)
  Sender: FDA-Public Use
  Company Number: JP-ASTELLAS-2011JP008479

PATIENT
  Age: 10 Year
  Sex: Male
  Weight: 17 kg

DRUGS (7)
  1. PROGRAF [Suspect]
     Dosage: UNK
     Route: 065
     Dates: start: 20060101, end: 20070401
  2. ENBREL [Suspect]
     Indication: JUVENILE ARTHRITIS
     Dosage: 25 MG, WEEKLY
     Route: 058
     Dates: start: 20080212, end: 20080304
  3. IBRUPROFEN [Concomitant]
     Dosage: 900 G, UNKNOWN/D
     Route: 065
     Dates: start: 20020501, end: 20100921
  4. PROGRAF [Suspect]
     Indication: JUVENILE ARTHRITIS
     Dosage: 4 MG, UNKNOWN/D
     Route: 065
     Dates: start: 20071101, end: 20080717
  5. ENBREL [Suspect]
     Dosage: 37.5 MG, WEEKLY
     Route: 058
     Dates: start: 20080304, end: 20080502
  6. ENBREL [Suspect]
     Dosage: 50 MG, WEEKLY
     Route: 058
     Dates: start: 20080502, end: 20080619
  7. PREDNISOLONE [Suspect]
     Indication: JUVENILE ARTHRITIS
     Dosage: UNK
     Route: 065
     Dates: start: 20000201, end: 20100507

REACTIONS (4)
  - HERPES ZOSTER [None]
  - ARTHRALGIA [None]
  - OFF LABEL USE [None]
  - PYREXIA [None]
